FAERS Safety Report 25006632 (Version 1)
Quarter: 2025Q1

REPORT INFORMATION
  Report Type: Other
  Country: JP (occurrence: JP)
  Receive Date: 20250225
  Receipt Date: 20250225
  Transmission Date: 20250409
  Serious: Yes (Hospitalization, Other)
  Sender: OWLPHARMA CONSULTING
  Company Number: JP-Owlpharma Consulting, Lda.-2171718

PATIENT
  Age: 39 Year
  Sex: Female
  Weight: 58.0 kg

DRUGS (2)
  1. MAGNESIUM SULFATE [Suspect]
     Active Substance: MAGNESIUM SULFATE
     Indication: Premature labour
  2. RITODRINE [Suspect]
     Active Substance: RITODRINE

REACTIONS (4)
  - Diabetes insipidus [Unknown]
  - Off label use [Unknown]
  - Maternal exposure during pregnancy [Unknown]
  - Hepatic function abnormal [Recovered/Resolved]
